FAERS Safety Report 14485046 (Version 2)
Quarter: 2018Q1

REPORT INFORMATION
  Report Type: Spontaneous
  Country: US (occurrence: US)
  Receive Date: 20180205
  Receipt Date: 20180308
  Transmission Date: 20180509
  Serious: No
  Sender: FDA-Public Use
  Company Number: US-PFIZER INC-2018045642

PATIENT
  Sex: Female

DRUGS (1)
  1. EUCRISA [Suspect]
     Active Substance: CRISABOROLE
     Indication: ECZEMA
     Dosage: UNK UNK, AS NEEDED (BID)
     Route: 061

REACTIONS (3)
  - Papule [Unknown]
  - Skin irritation [Unknown]
  - Product administered at inappropriate site [Unknown]
